FAERS Safety Report 15272420 (Version 1)
Quarter: 2018Q3

REPORT INFORMATION
  Report Type: Spontaneous
  Country: ZA (occurrence: ZA)
  Receive Date: 20180813
  Receipt Date: 20180813
  Transmission Date: 20181010
  Serious: Yes (Hospitalization, Other)
  Sender: FDA-Public Use
  Company Number: ZA-PFIZER INC-2018310617

PATIENT
  Age: 39 Year
  Sex: Female

DRUGS (3)
  1. ASPAVOR [Suspect]
     Active Substance: ATORVASTATIN
     Dosage: UNK
  2. DIAGLUCIDE [Suspect]
     Active Substance: GLICLAZIDE
     Dosage: UNK
  3. MENGEN [Suspect]
     Active Substance: METFORMIN HYDROCHLORIDE
     Dosage: UNK

REACTIONS (2)
  - Diabetes mellitus [Unknown]
  - Influenza [Unknown]
